FAERS Safety Report 6377259-7 (Version None)
Quarter: 2009Q3

REPORT INFORMATION
  Report Type: 
  Country: None (occurrence: None)
  Receive Date: 20090924
  Receipt Date: 20090924
  Transmission Date: 20100115
  Serious: Yes (Life-Threatening, Hospitalization)
  Sender: FDA-Public Use
  Company Number: None

PATIENT
  Age: 64 Year
  Sex: Male

DRUGS (2)
  1. LITHIUM CARBONATE [Suspect]
     Indication: BIPOLAR I DISORDER
     Dosage: SEE BELOW MG BID PO
     Route: 048
     Dates: start: 20090903, end: 20090917
  2. LISINOPRIL AND HYDROCHLOROTHIAZIDE [Suspect]
     Dosage: 25MG/20MG TAB EVERY DAY PO
     Route: 048
     Dates: start: 20090309, end: 20090917

REACTIONS (6)
  - CEREBROVASCULAR ACCIDENT [None]
  - DRUG LEVEL ABOVE THERAPEUTIC [None]
  - HYPOPHAGIA [None]
  - NEPHROGENIC DIABETES INSIPIDUS [None]
  - RENAL FAILURE ACUTE [None]
  - TRANSIENT ISCHAEMIC ATTACK [None]
